FAERS Safety Report 5018699-8 (Version None)
Quarter: 2006Q2

REPORT INFORMATION
  Report Type: 
  Country: None (occurrence: None)
  Receive Date: 20060605
  Receipt Date: 20060526
  Transmission Date: 20061013
  Serious: Yes (Hospitalization)
  Sender: FDA-Public Use
  Company Number: NL-ABBOTT-06P-114-0334341-00

PATIENT
  Sex: Male

DRUGS (3)
  1. CLARITHROMYCIN [Suspect]
     Indication: GASTRITIS
     Route: 048
     Dates: start: 20060223, end: 20060303
  2. PANTOPRAZOLE [Suspect]
     Indication: GASTRITIS
     Route: 048
     Dates: start: 20060223, end: 20060303
  3. AMOXICILLIN [Suspect]
     Indication: GASTRITIS
     Route: 048
     Dates: start: 20060223, end: 20060303

REACTIONS (2)
  - DEHYDRATION [None]
  - NAUSEA [None]
